FAERS Safety Report 4403569-6 (Version None)
Quarter: 2004Q3

REPORT INFORMATION
  Report Type: 
  Country: None (occurrence: None)
  Receive Date: 20040721
  Receipt Date: 20040719
  Transmission Date: 20050211
  Serious: Yes (Hospitalization)
  Sender: FDA-Public Use
  Company Number: US-GLAXOSMITHKLINE-A0518817A

PATIENT
  Sex: Female

DRUGS (9)
  1. LAMICTAL [Suspect]
     Indication: BIPOLAR DISORDER
     Dosage: 100MG PER DAY
     Route: 048
  2. DEPAKOTE [Concomitant]
  3. ARICEPT [Concomitant]
  4. PAROXETINE HCL [Concomitant]
  5. CLONAZEPAM [Concomitant]
  6. TYLENOL [Concomitant]
  7. ANTIHISTAMINE [Concomitant]
  8. LIPITOR [Concomitant]
  9. LOPID [Concomitant]

REACTIONS (3)
  - CHROMATURIA [None]
  - JAUNDICE [None]
  - PRURITUS [None]
